FAERS Safety Report 17979968 (Version 3)
Quarter: 2020Q3

REPORT INFORMATION
  Report Type: Spontaneous
  Country: JP (occurrence: JP)
  Receive Date: 20200703
  Receipt Date: 20200811
  Transmission Date: 20201103
  Serious: Yes (Death, Life-Threatening, Other)
  Sender: FDA-Public Use
  Company Number: JP-ASTRAZENECA-2020SE81541

PATIENT
  Age: 80 Year
  Sex: Male
  Weight: 76 kg

DRUGS (41)
  1. FENTANYL. [Concomitant]
     Active Substance: FENTANYL
     Route: 042
     Dates: start: 20200610
  2. D?SORBITOL [Concomitant]
     Indication: CONSTIPATION
     Dosage: 200 ML
     Route: 048
     Dates: start: 20200619, end: 20200619
  3. TATHION [Concomitant]
     Active Substance: GLUTATHIONE
     Dosage: 200MG
     Route: 065
     Dates: start: 20200620, end: 20200627
  4. GLUCOSE [Concomitant]
     Active Substance: DEXTROSE
     Dosage: 20 ML TO 350 ML
     Route: 042
     Dates: start: 20200610, end: 20200627
  5. LOKELMA [Suspect]
     Active Substance: SODIUM ZIRCONIUM CYCLOSILICATE
     Indication: HYPERKALAEMIA
     Route: 048
     Dates: start: 20200616, end: 20200619
  6. NAFAMOSTAT [Concomitant]
     Active Substance: NAFAMOSTAT
     Indication: HYPOTENSION
     Dosage: 200 MG TO 400 MG
     Route: 042
     Dates: start: 20200615, end: 20200626
  7. HEPARIN [Concomitant]
     Active Substance: HEPARIN SODIUM
     Dosage: 5000IU
     Route: 042
     Dates: start: 20200611, end: 20200625
  8. PRIMPERAN [Concomitant]
     Active Substance: METOCLOPRAMIDE HYDROCHLORIDE
     Indication: GASTROINTESTINAL HYPOMOTILITY
     Dosage: 1 DF
     Route: 042
     Dates: start: 20200611, end: 20200627
  9. MIDAZOLAM. [Concomitant]
     Active Substance: MIDAZOLAM
     Route: 065
     Dates: start: 20200611, end: 20200625
  10. AMIODARONE HYDROCHLORIDE. [Concomitant]
     Active Substance: AMIODARONE HYDROCHLORIDE
     Indication: ARRHYTHMIA
     Route: 048
     Dates: start: 20200619, end: 20200626
  11. TAKECAB [Concomitant]
     Active Substance: VONOPRAZAN FUMARATE
     Route: 048
     Dates: start: 20200619, end: 20200626
  12. CEFAZOLIN NA [Concomitant]
     Active Substance: CEFAZOLIN SODIUM
  13. SOLU?CORTEF [Concomitant]
     Active Substance: HYDROCORTISONE SODIUM SUCCINATE
     Indication: HORMONE LEVEL ABNORMAL
     Dosage: 100 ML TO 500 ML
     Route: 042
     Dates: start: 20200610, end: 20200623
  14. PICOSULFATE NA [Concomitant]
     Active Substance: SODIUM PICOSULFATE
     Indication: CONSTIPATION
     Route: 048
     Dates: start: 20200619, end: 20200619
  15. GENTAMICIN SULFATE. [Concomitant]
     Active Substance: GENTAMICIN SULFATE
  16. TAZOPIPE [Concomitant]
     Active Substance: PIPERACILLIN SODIUM\TAZOBACTAM SODIUM
     Dosage: 1DF
     Route: 042
     Dates: start: 20200615, end: 20200627
  17. LOKELMA [Suspect]
     Active Substance: SODIUM ZIRCONIUM CYCLOSILICATE
     Indication: HYPERKALAEMIA
     Route: 048
     Dates: start: 20200616, end: 20200619
  18. JARDIANCE [Concomitant]
     Active Substance: EMPAGLIFLOZIN
     Indication: DIABETES MELLITUS
     Route: 048
     Dates: start: 20200619, end: 20200625
  19. AZUNOL [Concomitant]
     Indication: ULCER
     Route: 062
  20. PHYSIOLOGICAL SALINE SOLUTION [Concomitant]
     Active Substance: SODIUM CHLORIDE
     Dosage: 3 ML TO 90 ML
     Route: 042
     Dates: start: 20200609, end: 20200627
  21. CEFAMEZIN ALPHA [Concomitant]
     Active Substance: CEFAZOLIN SODIUM
     Indication: INFECTION PROPHYLAXIS
     Dosage: 1 KIT
     Route: 042
     Dates: start: 20200609, end: 20200609
  22. CEFAZOLIN SODIUM. [Concomitant]
     Active Substance: CEFAZOLIN SODIUM
     Route: 065
     Dates: start: 20200610, end: 20200614
  23. TAZOBACTAM SODIUM/PIPERACILLIN SODIUM [Concomitant]
     Active Substance: PIPERACILLIN SODIUM\TAZOBACTAM SODIUM
     Route: 065
     Dates: start: 20200615
  24. NORADRENALINE [Concomitant]
     Active Substance: NOREPINEPHRINE
     Indication: HYPOTENSION
     Dosage: 5 A TO 20 A
     Route: 065
     Dates: start: 20200609, end: 20200627
  25. VITAJECT [Concomitant]
     Active Substance: CYANOCOBALAMIN\PYRIDOXAMINE HYDROCHLORIDE\THIAMINE HYDROCHLORIDE
     Indication: VITAMIN SUPPLEMENTATION
     Dosage: 1KIT
     Route: 042
  26. SOLDEM 3A [Concomitant]
     Active Substance: CARBOHYDRATES\POTASSIUM CHLORIDE\SODIUM CHLORIDE\SODIUM LACTATE
     Dosage: 500 ML
     Route: 042
     Dates: start: 20200610, end: 20200611
  27. MEYLON [Concomitant]
     Active Substance: SODIUM BICARBONATE
     Dosage: 40 ML TO 250 ML
     Route: 042
     Dates: start: 20200610, end: 20200626
  28. ROCURONIUM BROMIDE. [Concomitant]
     Active Substance: ROCURONIUM BROMIDE
     Dosage: 50
     Route: 042
     Dates: start: 20200625, end: 20200625
  29. BISONO [Concomitant]
     Active Substance: BISOPROLOL
     Indication: ARRHYTHMIA
     Route: 062
     Dates: start: 20200613
  30. POTASSIUM CHLORIDE. [Concomitant]
     Active Substance: POTASSIUM CHLORIDE
     Indication: HYPOKALAEMIA
     Dosage: 10 ML TO 40 ML
     Route: 042
     Dates: start: 20200610, end: 20200627
  31. ASCORBIC ACID. [Concomitant]
     Active Substance: ASCORBIC ACID
     Indication: VITAMIN SUPPLEMENTATION
     Dosage: 1DF
     Route: 042
     Dates: start: 20200612, end: 20200622
  32. ULTIVA [Concomitant]
     Active Substance: REMIFENTANIL HYDROCHLORIDE
     Indication: PAIN
     Dosage: 2MG
     Route: 042
  33. ADSORBED TETANUS TOXOID [Concomitant]
     Dosage: 1 DF
     Route: 030
     Dates: start: 20200609, end: 20200609
  34. BOSMIN [Concomitant]
     Active Substance: EPINEPHRINE
     Indication: HYPOTENSION
     Dosage: 5 A TO 10 A
     Route: 065
     Dates: start: 20200610, end: 20200610
  35. LACTEC [Concomitant]
     Active Substance: CALCIUM CHLORIDE ANHYDROUS\POTASSIUM CHLORIDE\SODIUM CHLORIDE\SODIUM LACTATE
     Dosage: 500.0ML UNKNOWN
     Route: 065
     Dates: start: 20200617, end: 20200617
  36. ACETAMINOPHEN. [Concomitant]
     Active Substance: ACETAMINOPHEN
     Indication: PAIN
     Dosage: 1DF
     Route: 042
     Dates: start: 20200625, end: 20200625
  37. LOKELMA [Suspect]
     Active Substance: SODIUM ZIRCONIUM CYCLOSILICATE
     Indication: HYPERKALAEMIA
     Route: 048
     Dates: start: 20200613, end: 20200615
  38. PANTOSIN [Concomitant]
     Active Substance: PANTETHINE
     Indication: GASTROINTESTINAL HYPOMOTILITY
     Dosage: 5 A TO 20 A
     Route: 065
     Dates: start: 20200609, end: 20200627
  39. ACTOSIN [Concomitant]
     Indication: ULCER
     Dosage: 30G TO 50 G
     Route: 062
  40. ISODINE [Concomitant]
     Active Substance: POVIDONE-IODINE
  41. AMIODARONE HYDROCHLORIDE. [Concomitant]
     Active Substance: AMIODARONE HYDROCHLORIDE
     Indication: ARRHYTHMIA
     Dosage: 2.5 ML TO 15 ML
     Route: 042
     Dates: start: 20200611, end: 20200623

REACTIONS (7)
  - Rectal perforation [Not Recovered/Not Resolved]
  - Product preparation issue [Unknown]
  - Peritonitis [Not Recovered/Not Resolved]
  - Ileus paralytic [Unknown]
  - Product residue present [Unknown]
  - Multiple organ dysfunction syndrome [Fatal]
  - Large intestine perforation [Unknown]

NARRATIVE: CASE EVENT DATE: 20200619
